FAERS Safety Report 8516639-8 (Version None)
Quarter: 2012Q2

REPORT INFORMATION
  Report Type: 
  Country: None (occurrence: None)
  Receive Date: 20120406
  Receipt Date: 20090504
  Transmission Date: 20120825
  Serious: Yes (Other)
  Sender: FDA-Public Use
  Company Number: PHEH2009US04404

PATIENT
  Age: 72 Year
  Sex: Female

DRUGS (2)
  1. TASIGNA [Suspect]
     Indication: ACUTE LYMPHOCYTIC LEUKAEMIA
     Dosage: 400 MG, Q12H
     Dates: start: 20081203, end: 20090101
  2. TASIGNA [Suspect]
     Indication: ACUTE LYMPHOCYTIC LEUKAEMIA
     Dosage: 400 MG, Q12H
     Dates: start: 20090401

REACTIONS (5)
  - RED BLOOD CELL COUNT DECREASED [None]
  - PACKED RED BLOOD CELL TRANSFUSION [None]
  - PLATELET TRANSFUSION [None]
  - WHITE BLOOD CELL COUNT DECREASED [None]
  - PLATELET COUNT DECREASED [None]
